FAERS Safety Report 25912429 (Version 1)
Quarter: 2025Q4

REPORT INFORMATION
  Report Type: Spontaneous
  Country: JP (occurrence: JP)
  Receive Date: 20251013
  Receipt Date: 20251013
  Transmission Date: 20260118
  Serious: Yes (Hospitalization, Disabling, Other)
  Sender: ROCHE
  Company Number: JP-CHUGAI-2025032231

PATIENT
  Age: 8 Decade
  Sex: Female

DRUGS (1)
  1. ACTEMRA [Suspect]
     Active Substance: TOCILIZUMAB
     Indication: Rheumatoid arthritis
     Dosage: UNK
     Route: 058

REACTIONS (6)
  - Joint arthroplasty [Unknown]
  - Osteomyelitis [Recovered/Resolved with Sequelae]
  - Device related infection [Recovered/Resolved]
  - Staphylococcal infection [Unknown]
  - Hyperkeratosis [Unknown]
  - Wound [Unknown]

NARRATIVE: CASE EVENT DATE: 20250101
